FAERS Safety Report 4646039-2 (Version None)
Quarter: 2005Q2

REPORT INFORMATION
  Report Type: 
  Country: None (occurrence: None)
  Receive Date: 20050425
  Receipt Date: 20050412
  Transmission Date: 20051028
  Serious: Yes (Other)
  Sender: FDA-Public Use
  Company Number: 2005058785

PATIENT
  Age: 77 Year
  Sex: Female
  Weight: 81.6475 kg

DRUGS (3)
  1. CELEBREX [Suspect]
     Indication: ILL-DEFINED DISORDER
     Dosage: (200 MG)
     Dates: end: 20050411
  2. VITAMINS (VITAMINS) [Concomitant]
  3. TRIAMTERENE (TRIAMTERENE) [Concomitant]

REACTIONS (2)
  - KNEE ARTHROPLASTY [None]
  - PARAESTHESIA [None]
